FAERS Safety Report 12929408 (Version 3)
Quarter: 2017Q1

REPORT INFORMATION
  Report Type: Spontaneous
  Country: IT (occurrence: IT)
  Receive Date: 20161110
  Receipt Date: 20170120
  Transmission Date: 20170428
  Serious: Yes (Life-Threatening, Other)
  Sender: FDA-Public Use
  Company Number: IT-PFIZER INC-2016515523

PATIENT
  Age: 78 Year
  Sex: Male

DRUGS (3)
  1. FLUOROURACIL TEVA [Suspect]
     Active Substance: FLUOROURACIL
     Indication: COLON NEOPLASM
     Dosage: UNK, CYCLIC
     Route: 042
  2. AVASTIN [Suspect]
     Active Substance: BEVACIZUMAB
     Dosage: UNK
  3. IRINOTECAN HOSPIRA [Suspect]
     Active Substance: IRINOTECAN
     Indication: COLON NEOPLASM
     Dosage: 270 MG, CYCLIC
     Route: 042

REACTIONS (1)
  - Encephalopathy [Recovering/Resolving]

NARRATIVE: CASE EVENT DATE: 20160902
